FAERS Safety Report 20440023 (Version 1)
Quarter: 2022Q1

REPORT INFORMATION
  Report Type: Spontaneous
  Country: US (occurrence: None)
  Receive Date: 20220205
  Receipt Date: 20220205
  Transmission Date: 20220424
  Serious: Yes (Other)
  Sender: FDA-Public Use
  Company Number: None

PATIENT
  Age: 82 Year
  Sex: Male
  Weight: 83.25 kg

DRUGS (8)
  1. NUPLAZID [Suspect]
     Active Substance: PIMAVANSERIN TARTRATE
     Indication: Hallucination
     Dosage: FREQUENCY : AT BEDTIME;?
     Route: 048
     Dates: start: 20211015, end: 20211105
  2. NUPLAZID [Suspect]
     Active Substance: PIMAVANSERIN TARTRATE
     Indication: Delusion
  3. Ketoconizole shampoo [Concomitant]
  4. LACTULOSE [Concomitant]
     Active Substance: LACTULOSE
  5. VITAMINS D3 [Concomitant]
  6. VITAMIN B12 [Concomitant]
     Active Substance: CYANOCOBALAMIN
  7. MAGNESIUM [Concomitant]
     Active Substance: MAGNESIUM
  8. MELATONIN [Concomitant]
     Active Substance: MELATONIN

REACTIONS (14)
  - Coordination abnormal [None]
  - Speech disorder [None]
  - Hallucination, auditory [None]
  - Balance disorder [None]
  - Fall [None]
  - Metamorphopsia [None]
  - Disorientation [None]
  - Aggression [None]
  - Tremor [None]
  - Pyrexia [None]
  - Seizure [None]
  - Hypokinesia [None]
  - Suicidal ideation [None]
  - Facial paralysis [None]

NARRATIVE: CASE EVENT DATE: 20211103
